FAERS Safety Report 4356000-3 (Version None)
Quarter: 2004Q2

REPORT INFORMATION
  Report Type: 
  Country: None (occurrence: None)
  Receive Date: 20040507
  Receipt Date: 20040507
  Transmission Date: 20050107
  Serious: Yes (Hospitalization)
  Sender: FDA-Public Use
  Company Number: None

PATIENT
  Age: 55 Year
  Sex: Male
  Weight: 118.8 kg

DRUGS (23)
  1. BACTRIM [Suspect]
  2. LANSOPRAZOLE [Concomitant]
  3. OXYBUTRIN [Concomitant]
  4. DICLOFENAC [Concomitant]
  5. FELODIPINE [Concomitant]
  6. METHOTREXATE [Concomitant]
  7. LUBRICATING EYE DROPS [Concomitant]
  8. TRAMADOL HCL [Concomitant]
  9. FLUTICASONE PROPIONATE [Concomitant]
  10. PROPIONATE NASAL SPRAY [Concomitant]
  11. POTASSIUM CHLORIDE [Concomitant]
  12. CLOTRIMAZOLE [Concomitant]
  13. DESENEX TOPICAL POWDER [Concomitant]
  14. SIMVASTATIN [Concomitant]
  15. FLUOCINOLONE ACETONIDE [Concomitant]
  16. MOISTURIZING CREAM [Concomitant]
  17. TRIAMCINOLONE OINTMENT [Concomitant]
  18. GABAPENTIN [Concomitant]
  19. DESMOPRESSIN ACETATE [Concomitant]
  20. TAMSULOSIN [Concomitant]
  21. CALCIPOTRIENE OINT [Concomitant]
  22. LIDOCAINE [Concomitant]
  23. FOLIC ACID [Concomitant]

REACTIONS (1)
  - RASH [None]
